FAERS Safety Report 9217205 (Version 3)
Quarter: 2013Q2

REPORT INFORMATION
  Report Type: Spontaneous
  Country: RO (occurrence: RO)
  Receive Date: 20130408
  Receipt Date: 20130618
  Transmission Date: 20140414
  Serious: Yes (Other)
  Sender: FDA-Public Use
  Company Number: RO-JNJFOC-20130401612

PATIENT
  Age: 76 Year
  Sex: Female

DRUGS (3)
  1. REMINYL [Suspect]
     Indication: DEMENTIA
     Route: 048
     Dates: start: 20130326
  2. REMINYL [Suspect]
     Indication: DEMENTIA
     Dosage: 4MG/ML
     Route: 048
     Dates: start: 20130122
  3. QUETIAPINE [Concomitant]
     Indication: DEPRESSION
     Route: 065
     Dates: start: 20120518

REACTIONS (2)
  - Tremor [Recovered/Resolved]
  - Hyperhidrosis [Recovered/Resolved]
